FAERS Safety Report 23485802 (Version 2)
Quarter: 2025Q1

REPORT INFORMATION
  Report Type: Spontaneous
  Country: US (occurrence: US)
  Receive Date: 20240206
  Receipt Date: 20250211
  Transmission Date: 20250409
  Serious: Yes (Hospitalization)
  Sender: DR REDDYS
  Company Number: US-DRL-USA-LIT/USA/24/0001605

PATIENT
  Age: 17 Year
  Sex: Female

DRUGS (1)
  1. RISPERIDONE [Suspect]
     Active Substance: RISPERIDONE
     Indication: Schizophrenia

REACTIONS (1)
  - Gynaecomastia [Unknown]
